FAERS Safety Report 13679523 (Version 3)
Quarter: 2018Q1

REPORT INFORMATION
  Report Type: Report from Study
  Country: US (occurrence: US)
  Receive Date: 20170622
  Receipt Date: 20180316
  Transmission Date: 20180508
  Serious: Yes (Other)
  Sender: FDA-Public Use
  Company Number: US-AMGEN-USASL2017093221

PATIENT
  Age: 65 Year
  Sex: Female
  Weight: 77.56 kg

DRUGS (1)
  1. REPATHA [Suspect]
     Active Substance: EVOLOCUMAB
     Indication: BLOOD CHOLESTEROL INCREASED
     Dosage: 140 MG, Q2WK
     Route: 058
     Dates: start: 20161205, end: 20170612

REACTIONS (3)
  - Swelling face [Unknown]
  - Feeling abnormal [Unknown]
  - Thinking abnormal [Unknown]
